FAERS Safety Report 9764220 (Version 2)
Quarter: 2014Q1

REPORT INFORMATION
  Report Type: Spontaneous
  Country: BR (occurrence: BR)
  Receive Date: 20131216
  Receipt Date: 20140102
  Transmission Date: 20141002
  Serious: Yes (Other)
  Sender: FDA-Public Use
  Company Number: BR-PFIZER INC-2013358266

PATIENT
  Age: 53 Year
  Sex: Male
  Weight: 90 kg

DRUGS (2)
  1. LYRICA [Suspect]
     Indication: BACK PAIN
     Dosage: UNK
     Dates: start: 20111213, end: 2011
  2. DIPROSPAN [Concomitant]
     Indication: BACK PAIN
     Dosage: ONE AMPOULE, EVERY 10 DAYS

REACTIONS (4)
  - Infective myositis [Unknown]
  - Spinal disorder [Unknown]
  - Pain [Unknown]
  - Osteoarthritis [Unknown]
